FAERS Safety Report 5251113-6 (Version None)
Quarter: 2007Q1

REPORT INFORMATION
  Report Type: 
  Country: None (occurrence: None)
  Receive Date: 20070228
  Receipt Date: 20060929
  Transmission Date: 20070707
  Serious: No
  Sender: FDA-Public Use
  Company Number: US-GLAXOSMITHKLINE-A0618232A

PATIENT
  Age: 32 Year
  Sex: Female

DRUGS (4)
  1. LAMICTAL [Suspect]
     Indication: EPILEPSY
     Dosage: 225MG PER DAY
     Route: 048
     Dates: start: 19990101, end: 20060131
  2. TRANXENE [Concomitant]
     Dosage: 7.5MG UNKNOWN
     Route: 048
     Dates: start: 19930101
  3. CORTEF [Concomitant]
     Dosage: 5MG THREE TIMES PER DAY
     Route: 048
     Dates: start: 20060524
  4. THYROID TAB [Concomitant]
     Indication: HYPOTHYROIDISM
     Dosage: 60MG TWICE PER DAY
     Route: 048
     Dates: start: 20050801

REACTIONS (5)
  - BALANCE DISORDER [None]
  - BLOOD CORTISOL DECREASED [None]
  - COORDINATION ABNORMAL [None]
  - HERPES SIMPLEX [None]
  - RESPIRATORY TRACT INFECTION [None]
